FAERS Safety Report 25086301 (Version 4)
Quarter: 2025Q2

REPORT INFORMATION
  Report Type: Report from Study
  Country: US (occurrence: US)
  Receive Date: 20250317
  Receipt Date: 20250601
  Transmission Date: 20250717
  Serious: Yes (Other)
  Sender: UCB
  Company Number: US-UCBSA-2025014962

PATIENT
  Age: 45 Year
  Sex: Female
  Weight: 96.599 kg

DRUGS (9)
  1. FINTEPLA [Suspect]
     Active Substance: FENFLURAMINE
     Indication: Product used for unknown indication
     Dosage: 4 MILLILITER, 2X/DAY (BID)
     Route: 048
     Dates: start: 20240920
  2. FINTEPLA [Suspect]
     Active Substance: FENFLURAMINE
     Indication: Epilepsy
     Dates: start: 20241001
  3. KEPPRA [Concomitant]
     Active Substance: LEVETIRACETAM
     Indication: Product used for unknown indication
     Dosage: 750 MILLIGRAM, 2X/DAY (BID)
     Route: 048
     Dates: start: 20010401
  4. LIPITOR [Concomitant]
     Active Substance: ATORVASTATIN CALCIUM
     Indication: Product used for unknown indication
     Dosage: 10 MILLIGRAM, ONCE DAILY (QD)
     Route: 048
  5. VITAMIN D3 [Concomitant]
     Active Substance: CHOLECALCIFEROL
     Indication: Product used for unknown indication
     Dosage: 50 MICROGRAM, ONCE DAILY (QD)
     Route: 048
  6. PEPCID [Concomitant]
     Active Substance: FAMOTIDINE
     Indication: Product used for unknown indication
     Dosage: 40 MILLIGRAM, ONCE DAILY (QD)
     Route: 048
  7. PROZAC [Concomitant]
     Active Substance: FLUOXETINE HYDROCHLORIDE
     Indication: Product used for unknown indication
     Dosage: 40 MILLIGRAM, ONCE DAILY (QD)
     Route: 048
  8. NAYZILAM [Concomitant]
     Active Substance: MIDAZOLAM
     Indication: Generalised tonic-clonic seizure
  9. DELTASONE [Concomitant]
     Active Substance: PREDNISONE
     Indication: Product used for unknown indication
     Route: 048

REACTIONS (4)
  - Aortic valve incompetence [Not Recovered/Not Resolved]
  - Mitral valve incompetence [Not Recovered/Not Resolved]
  - Left atrial dilatation [Unknown]
  - Left ventricular hypertrophy [Unknown]

NARRATIVE: CASE EVENT DATE: 20240909
